FAERS Safety Report 14574438 (Version 7)
Quarter: 2020Q4

REPORT INFORMATION
  Report Type: Report from Study
  Country: FR (occurrence: FR)
  Receive Date: 20180226
  Receipt Date: 20201120
  Transmission Date: 20210113
  Serious: Yes (Other)
  Sender: FDA-Public Use
  Company Number: FR-ROCHE-2074159

PATIENT
  Age: 63 Year
  Sex: Male
  Weight: 85 kg

DRUGS (9)
  1. ETOPOSIDE. [Suspect]
     Active Substance: ETOPOSIDE
     Indication: MANTLE CELL LYMPHOMA
     Route: 065
     Dates: start: 20180109, end: 20180116
  2. CYTARABINE. [Suspect]
     Active Substance: CYTARABINE
     Indication: MANTLE CELL LYMPHOMA
     Route: 065
     Dates: start: 20170904, end: 20171110
  3. MELPHALAN. [Suspect]
     Active Substance: MELPHALAN
     Indication: MANTLE CELL LYMPHOMA
     Route: 065
     Dates: start: 20180109, end: 20180116
  4. DEXAMETHASONE. [Suspect]
     Active Substance: DEXAMETHASONE
     Indication: MANTLE CELL LYMPHOMA
     Route: 065
     Dates: start: 20170904, end: 20171110
  5. VANCOMYCINE [Concomitant]
     Active Substance: VANCOMYCIN
     Dates: start: 20180122, end: 20180129
  6. CARMUSTINE. [Suspect]
     Active Substance: CARMUSTINE
     Indication: MANTLE CELL LYMPHOMA
     Route: 065
     Dates: start: 20180109, end: 20180116
  7. OBINUTUZUMAB. [Suspect]
     Active Substance: OBINUTUZUMAB
     Indication: MANTLE CELL LYMPHOMA
     Dosage: LAST ADMINISTRATION DOSE 1000 MG PRIOR TO SAE ON 09/JAN/2018
     Route: 042
     Dates: start: 20170904
  8. CYTARABINE. [Suspect]
     Active Substance: CYTARABINE
     Route: 065
     Dates: start: 20180109, end: 20180116
  9. OXALIPLATIN. [Suspect]
     Active Substance: OXALIPLATIN
     Indication: MANTLE CELL LYMPHOMA
     Dosage: C1, 245 MG ON 04/SEP/2017?C2, 240 MG ON 25/SEP/2017?C3 ON 19/OCT/2017?C4 ON 09/NOV/2017
     Route: 065
     Dates: start: 20170904, end: 20171110

REACTIONS (3)
  - Venoocclusive disease [Recovered/Resolved with Sequelae]
  - Cytomegalovirus infection reactivation [Recovered/Resolved]
  - Influenza [Recovered/Resolved]

NARRATIVE: CASE EVENT DATE: 20180202
